FAERS Safety Report 21755666 (Version 1)
Quarter: 2022Q4

REPORT INFORMATION
  Report Type: Spontaneous
  Country: CN (occurrence: CN)
  Receive Date: 20221220
  Receipt Date: 20221220
  Transmission Date: 20230112
  Serious: Yes (Hospitalization)
  Sender: FDA-Public Use
  Company Number: CN-HALEON-CNCH2022APC050633

PATIENT

DRUGS (2)
  1. IBUPROFEN [Suspect]
     Active Substance: IBUPROFEN
     Indication: Toothache
     Dosage: 1 DF, QD
     Route: 048
     Dates: start: 20221212, end: 20221212
  2. BOS TAURUS GALLSTONE\METRONIDAZOLE [Suspect]
     Active Substance: BOS TAURUS GALLSTONE\METRONIDAZOLE
     Indication: Toothache
     Dosage: 1 DF, QD
     Route: 048
     Dates: start: 20221212, end: 20221212

REACTIONS (7)
  - Urticaria [Recovering/Resolving]
  - Pruritus [Recovering/Resolving]
  - Scratch [Recovering/Resolving]
  - Skin plaque [Recovering/Resolving]
  - Oropharyngeal pain [Recovering/Resolving]
  - Rash [Recovering/Resolving]
  - Condition aggravated [Recovering/Resolving]

NARRATIVE: CASE EVENT DATE: 20221212
